FAERS Safety Report 11916098 (Version 1)
Quarter: 2016Q1

REPORT INFORMATION
  Report Type: Spontaneous
  Country: DE (occurrence: DE)
  Receive Date: 20160114
  Receipt Date: 20160114
  Transmission Date: 20160526
  Serious: Yes (Hospitalization, Other)
  Sender: FDA-Public Use
  Company Number: DE-ROXANE LABORATORIES, INC.-2016-RO-00018RO

PATIENT
  Age: 49 Year
  Sex: Female

DRUGS (1)
  1. LORAZEPAM INTENSOL [Suspect]
     Active Substance: LORAZEPAM
     Indication: TINNITUS
     Route: 048

REACTIONS (13)
  - Tinnitus [Recovered/Resolved]
  - Dizziness [Unknown]
  - Memory impairment [Unknown]
  - Bradyphrenia [Unknown]
  - Drug dependence [Recovered/Resolved]
  - Disturbance in attention [Unknown]
  - Drug withdrawal syndrome [Recovered/Resolved]
  - Mood swings [Unknown]
  - Dysarthria [Unknown]
  - Ataxia [Unknown]
  - Disorientation [Unknown]
  - Gait disturbance [Unknown]
  - Fall [Unknown]
